FAERS Safety Report 6967347-6 (Version None)
Quarter: 2010Q3

REPORT INFORMATION
  Report Type: 
  Country: None (occurrence: None)
  Receive Date: 20100907
  Receipt Date: 20100826
  Transmission Date: 20110219
  Serious: No
  Sender: FDA-Public Use
  Company Number: US-JNJFOC-20100900170

PATIENT
  Sex: Female
  Weight: 72.58 kg

DRUGS (2)
  1. FENTANYL CITRATE [Suspect]
     Indication: PAIN
     Route: 062
  2. UNKNOWN MEDICATION [Concomitant]
     Indication: HORMONE REPLACEMENT THERAPY
     Route: 062

REACTIONS (4)
  - INAPPROPRIATE SCHEDULE OF DRUG ADMINISTRATION [None]
  - PAIN [None]
  - PRODUCT ADHESION ISSUE [None]
  - PRODUCT QUALITY ISSUE [None]
